FAERS Safety Report 9168783 (Version 1)
Quarter: 2013Q1

REPORT INFORMATION
  Report Type: Spontaneous
  Country: GB (occurrence: GB)
  Receive Date: 20130318
  Receipt Date: 20130318
  Transmission Date: 20140127
  Serious: Yes (Disabling)
  Sender: FDA-Public Use
  Company Number: GB-ASTRAZENECA-2013SE15644

PATIENT
  Age: 65 Year
  Sex: Female
  Weight: 60 kg

DRUGS (8)
  1. BUPIVACAINE [Suspect]
     Indication: PAIN
     Route: 030
  2. KENALOG [Suspect]
     Indication: PAIN
     Route: 030
  3. KETOROLAC [Suspect]
     Indication: PAIN
     Route: 030
  4. BENDROFLUMETHIAZIDE [Concomitant]
  5. FEXOFENADINE [Concomitant]
  6. MOMETASONE [Concomitant]
     Route: 045
  7. SODIUM CROMOGLICATE [Concomitant]
     Route: 047
  8. TELMISARTAN [Concomitant]

REACTIONS (3)
  - Malaise [Not Recovered/Not Resolved]
  - Palpitations [Not Recovered/Not Resolved]
  - Syncope [Not Recovered/Not Resolved]
